FAERS Safety Report 22606631 (Version 1)
Quarter: 2023Q2

REPORT INFORMATION
  Report Type: Spontaneous
  Country: US (occurrence: None)
  Receive Date: 20230614
  Receipt Date: 20230614
  Transmission Date: 20230721
  Serious: Yes (Disabling)
  Sender: FDA-Public Use
  Company Number: None

PATIENT
  Age: 51 Year
  Sex: Male
  Weight: 86.18 kg

DRUGS (9)
  1. DULOXETINE [Suspect]
     Active Substance: DULOXETINE
     Indication: Depression
     Dosage: FREQUENCY : DAILY;?
     Route: 048
  2. DULOXETINE [Suspect]
     Active Substance: DULOXETINE
     Indication: Pain management
  3. DULOXETINE [Suspect]
     Active Substance: DULOXETINE
     Indication: Herpes zoster
  4. DULOXETINE [Concomitant]
     Active Substance: DULOXETINE
     Dosage: FREQUENCY : DAILY;?
  5. VALACYCLOVIR [Concomitant]
     Active Substance: VALACYCLOVIR HYDROCHLORIDE
     Dosage: FREQUENCY : DAILY;?
  6. HYDROCHLOROTHIAZIDE [Concomitant]
     Active Substance: HYDROCHLOROTHIAZIDE
     Dosage: FREQUENCY : DAILY;?
  7. METOPROLOL [Concomitant]
     Active Substance: METOPROLOL
     Dosage: FREQUENCY : TWICE A DAY;?
  8. LISINOPRIL [Concomitant]
     Active Substance: LISINOPRIL
  9. LEVOTHYROXINE [Concomitant]
     Active Substance: LEVOTHYROXINE
     Dosage: FREQUENCY : DAILY;?

REACTIONS (1)
  - Amnesia [None]

NARRATIVE: CASE EVENT DATE: 20230501
